FAERS Safety Report 8243412-0 (Version None)
Quarter: 2012Q1

REPORT INFORMATION
  Report Type: 
  Country: None (occurrence: None)
  Receive Date: 20120329
  Receipt Date: 20120323
  Transmission Date: 20120608
  Serious: Yes (Life-Threatening, Hospitalization)
  Sender: FDA-Public Use
  Company Number: RU-COVIDIEN/TYCO HEALTHCARE/MALLINCKRODT-T201201189

PATIENT
  Sex: Female

DRUGS (3)
  1. DIMEDROLUM [Concomitant]
     Indication: PREMEDICATION
     Dosage: 0.5 ML, SINGLE
     Route: 042
     Dates: start: 20120313, end: 20120313
  2. PREDNISOLONE [Concomitant]
     Indication: PREMEDICATION
     Dosage: 15 MG, SINGLE
     Route: 042
     Dates: start: 20120313, end: 20120313
  3. OPTIRAY 160 [Suspect]
     Indication: COMPUTERISED TOMOGRAM
     Dosage: 40 ML, SINGLE
     Route: 042
     Dates: start: 20120313, end: 20120313

REACTIONS (2)
  - ANAPHYLACTOID REACTION [None]
  - CHILLS [None]
